FAERS Safety Report 6385338-3 (Version None)
Quarter: 2009Q4

REPORT INFORMATION
  Report Type: 
  Country: None (occurrence: None)
  Receive Date: 20091002
  Receipt Date: 20081202
  Transmission Date: 20100525
  Serious: No
  Sender: FDA-Public Use
  Company Number: US-ASTRAZENECA-2008UW15767

PATIENT
  Age: 57 Year
  Sex: Female
  Weight: 59.9 kg

DRUGS (4)
  1. ARIMIDEX [Suspect]
     Indication: BREAST CANCER
     Route: 048
     Dates: start: 20010101
  2. ARIMIDEX [Suspect]
     Route: 048
     Dates: start: 20070701
  3. TAMOXIFEN CITRATE [Suspect]
     Indication: BREAST CANCER
     Route: 048
  4. EVISTA [Concomitant]

REACTIONS (3)
  - ARTHRALGIA [None]
  - ARTHRITIS [None]
  - BODY HEIGHT DECREASED [None]
